FAERS Safety Report 5749627-5 (Version None)
Quarter: 2008Q2

REPORT INFORMATION
  Report Type: 
  Country: None (occurrence: None)
  Receive Date: 20080527
  Receipt Date: 20080514
  Transmission Date: 20081010
  Serious: Yes (Hospitalization)
  Sender: FDA-Public Use
  Company Number: JP-MERCK-0804USA06517

PATIENT
  Age: 85 Year
  Sex: Male
  Weight: 52 kg

DRUGS (10)
  1. PRIMAXIN [Suspect]
     Indication: PNEUMONIA
     Route: 041
     Dates: start: 20080322, end: 20080403
  2. LASIX [Suspect]
     Route: 048
     Dates: start: 20080324, end: 20080416
  3. AMPICILLIN SODIUM AND SULBACTAM SODIUM [Suspect]
     Indication: PNEUMONIA
     Route: 042
     Dates: start: 20080320, end: 20080321
  4. LASIX [Suspect]
     Indication: CARDIAC FAILURE
     Route: 042
     Dates: start: 20080321, end: 20080323
  5. ATENOLOL [Concomitant]
     Indication: CARDIAC FAILURE CHRONIC
     Route: 048
  6. NORVASC [Concomitant]
     Indication: HYPERTENSION
     Route: 048
  7. NU-LOTAN [Concomitant]
     Indication: HYPERTENSION
     Route: 048
  8. BUFFERIN [Concomitant]
     Indication: MYOCARDIAL INFARCTION
     Route: 048
  9. RANITIDINE HYDROCHLORIDE [Concomitant]
     Indication: GASTRIC ULCER
     Route: 048
  10. MAGNESIUM OXIDE [Concomitant]
     Indication: CONSTIPATION
     Route: 048

REACTIONS (1)
  - PNEUMONIA [None]
